FAERS Safety Report 5062079-6 (Version None)
Quarter: 2006Q3

REPORT INFORMATION
  Report Type: 
  Country: None (occurrence: None)
  Receive Date: 20060726
  Receipt Date: 20060609
  Transmission Date: 20061208
  Serious: Yes (Hospitalization)
  Sender: FDA-Public Use
  Company Number: DE-ROCHE-451603

PATIENT
  Age: 52 Year
  Sex: Female

DRUGS (2)
  1. PEGASYS [Suspect]
     Route: 058
  2. COPEGUS [Suspect]
     Route: 065

REACTIONS (9)
  - ESCHERICHIA INFECTION [None]
  - GASTRITIS HAEMORRHAGIC [None]
  - HELICOBACTER PYLORI IDENTIFICATION TEST POSITIVE [None]
  - LEUKOPENIA [None]
  - NORMOCHROMIC NORMOCYTIC ANAEMIA [None]
  - PYELONEPHRITIS [None]
  - THROMBOCYTOPENIA [None]
  - THROMBOSIS [None]
  - UROSEPSIS [None]
